FAERS Safety Report 16006233 (Version 1)
Quarter: 2019Q1

REPORT INFORMATION
  Report Type: Spontaneous
  Country: GB (occurrence: GB)
  Receive Date: 20190226
  Receipt Date: 20190226
  Transmission Date: 20190418
  Serious: Yes (Death)
  Sender: FDA-Public Use
  Company Number: GB-BAYER-2019-037111

PATIENT
  Age: 47 Year
  Sex: Female

DRUGS (3)
  1. APROTININ [Suspect]
     Active Substance: APROTININ
     Indication: CORONARY ARTERY BYPASS
     Dosage: 500000 KIU, Q1HR INFUSION
     Route: 042
  2. APROTININ [Suspect]
     Active Substance: APROTININ
     Indication: AORTIC ANASTOMOSIS
     Dosage: 2000000 KIU, LOADING DOSE
  3. APROTININ [Suspect]
     Active Substance: APROTININ
     Indication: CORONARY ARTERY BYPASS
     Dosage: 10000 KIU, TEST DOSE
     Route: 042

REACTIONS (1)
  - Atrial thrombosis [Fatal]
